FAERS Safety Report 5028438-2 (Version None)
Quarter: 2006Q2

REPORT INFORMATION
  Report Type: 
  Country: None (occurrence: None)
  Receive Date: 20060617
  Receipt Date: 20060612
  Transmission Date: 20061013
  Serious: Yes (Hospitalization)
  Sender: FDA-Public Use
  Company Number: US-GLAXOSMITHKLINE-A0608636A

PATIENT
  Sex: Female

DRUGS (5)
  1. VENTOLIN HFA [Suspect]
     Indication: ASTHMA
     Dosage: 2PUFF AS REQUIRED
     Route: 055
  2. PROVENTIL-HFA [Suspect]
     Indication: ASTHMA
     Dosage: 2PUFF AS REQUIRED
     Route: 055
  3. ADVAIR DISKUS 100/50 [Concomitant]
  4. AVELOX [Concomitant]
  5. SYNTHROID [Concomitant]

REACTIONS (4)
  - DRUG HYPERSENSITIVITY [None]
  - OESOPHAGEAL INJURY [None]
  - PNEUMONIA [None]
  - VOMITING [None]
